FAERS Safety Report 10082665 (Version 2)
Quarter: 2014Q2

REPORT INFORMATION
  Report Type: Spontaneous
  Country: US (occurrence: US)
  Receive Date: 20140416
  Receipt Date: 20140422
  Transmission Date: 20141212
  Serious: No
  Sender: FDA-Public Use
  Company Number: US-009507513-1403USA013604

PATIENT
  Age: 44 Year
  Sex: Female
  Weight: 129.25 kg

DRUGS (8)
  1. OXYTROL FOR WOMEN [Suspect]
     Indication: URINARY INCONTINENCE
     Dosage: UNK, UNKNOWN
     Route: 062
     Dates: start: 20140306, end: 20140310
  2. OXYTROL FOR WOMEN [Suspect]
     Indication: POLLAKIURIA
  3. OXYTROL FOR WOMEN [Suspect]
     Indication: BLADDER DISORDER
  4. VESICARE [Concomitant]
     Indication: STRESS URINARY INCONTINENCE
     Dosage: 10 MG, UNKNOWN
  5. IMITREX (SUMATRIPTAN SUCCINATE) [Concomitant]
     Indication: MIGRAINE
     Dosage: UNK, UNKNOWN
  6. PROAIR (ALBUTEROL SULFATE) [Concomitant]
     Indication: ASTHMA
     Dosage: UNK, UNKNOWN
  7. ALBUTEROL [Concomitant]
     Indication: ASTHMA
     Dosage: UNK, UNKNOWN
  8. PULMICORT [Concomitant]
     Indication: ASTHMA
     Dosage: UNK, UNKNOWN

REACTIONS (2)
  - Off label use [Unknown]
  - Drug ineffective [Unknown]
